FAERS Safety Report 21954492 (Version 2)
Quarter: 2023Q1

REPORT INFORMATION
  Report Type: Spontaneous
  Country: US (occurrence: US)
  Receive Date: 20230205
  Receipt Date: 20230222
  Transmission Date: 20230418
  Serious: Yes (Life-Threatening, Hospitalization, Other)
  Sender: FDA-Public Use
  Company Number: US-MLMSERVICE-20230119-4047692-1

PATIENT
  Age: 64 Year
  Sex: Female

DRUGS (1)
  1. METFORMIN [Suspect]
     Active Substance: METFORMIN HYDROCHLORIDE
     Indication: Type 2 diabetes mellitus
     Dosage: 850 MILLIGRAM, TWO TIMES A DAY
     Route: 065

REACTIONS (6)
  - Acute kidney injury [Recovered/Resolved]
  - Azotaemia [Recovered/Resolved]
  - Distributive shock [Recovered/Resolved]
  - Extra dose administered [Recovered/Resolved]
  - Facial paralysis [Recovered/Resolved]
  - Lactic acidosis [Recovered/Resolved]
